FAERS Safety Report 8437191-1 (Version None)
Quarter: 2012Q2

REPORT INFORMATION
  Report Type: 
  Country: None (occurrence: None)
  Receive Date: 20120614
  Receipt Date: 20120314
  Transmission Date: 20120825
  Serious: No
  Sender: FDA-Public Use
  Company Number: US-AMGEN-USASP2011044274

PATIENT
  Age: 59 Year
  Sex: Female
  Weight: 149 kg

DRUGS (8)
  1. ARTHROTEC [Concomitant]
     Dosage: UNK
  2. VITAMIN E [Concomitant]
     Dosage: UNK
  3. VITAMIN D [Concomitant]
     Dosage: UNK
  4. PROLIA [Suspect]
     Indication: OSTEOPOROSIS POSTMENOPAUSAL
     Dosage: 60 MG, Q6MO
     Route: 058
     Dates: start: 20110818
  5. CALCIUM WITH VITAMIN D [Concomitant]
     Dosage: UNK
  6. MULTI-VITAMIN [Concomitant]
     Dosage: UNK
  7. COSAMIN DS [Concomitant]
     Dosage: UNK
  8. FISH OIL [Concomitant]
     Dosage: UNK

REACTIONS (3)
  - ARTHRALGIA [None]
  - MYALGIA [None]
  - RASH PRURITIC [None]
